FAERS Safety Report 9291782 (Version 3)
Quarter: 2013Q3

REPORT INFORMATION
  Report Type: Spontaneous
  Country: US (occurrence: US)
  Receive Date: 20130516
  Receipt Date: 20130719
  Transmission Date: 20140515
  Serious: Yes (Hospitalization)
  Sender: FDA-Public Use
  Company Number: US-BIOGENIDEC-2013BI041224

PATIENT
  Sex: Female

DRUGS (2)
  1. AVONEX [Suspect]
     Indication: MULTIPLE SCLEROSIS
     Route: 030
     Dates: start: 20091229
  2. ALEVE [Concomitant]
     Indication: PREMEDICATION

REACTIONS (9)
  - Meniscus injury [Recovered/Resolved]
  - Spider vein [Not Recovered/Not Resolved]
  - Anaesthetic complication [Recovered/Resolved]
  - Delayed recovery from anaesthesia [Recovered/Resolved]
  - Adverse drug reaction [Not Recovered/Not Resolved]
  - Chills [Recovered/Resolved]
  - Headache [Not Recovered/Not Resolved]
  - Malaise [Recovered/Resolved]
  - Drug hypersensitivity [Recovered/Resolved]
